FAERS Safety Report 14258764 (Version 1)
Quarter: 2017Q4

REPORT INFORMATION
  Report Type: Spontaneous
  Country: US (occurrence: US)
  Receive Date: 20171206
  Receipt Date: 20171206
  Transmission Date: 20180321
  Serious: Yes (Death)
  Sender: FDA-Public Use
  Company Number: None

PATIENT
  Age: 73 Year
  Sex: Female
  Weight: 70.2 kg

DRUGS (22)
  1. CELEBREX [Concomitant]
     Active Substance: CELECOXIB
  2. ASPIRIN. [Concomitant]
     Active Substance: ASPIRIN
  3. PANTOPRAZOLE [Concomitant]
     Active Substance: PANTOPRAZOLE
  4. XGEVA [Concomitant]
     Active Substance: DENOSUMAB
  5. NYSTATIN-TRIAMCINOLONE OINTMENT [Concomitant]
     Active Substance: NYSTATIN\TRIAMCINOLONE
  6. ACETAMINOPHEN. [Concomitant]
     Active Substance: ACETAMINOPHEN
  7. LETROZOLE. [Concomitant]
     Active Substance: LETROZOLE
  8. GLIPIZIDE. [Concomitant]
     Active Substance: GLIPIZIDE
  9. FLONASE ALLERGY RELIEF [Concomitant]
     Active Substance: FLUTICASONE PROPIONATE
  10. CORTISONE [Concomitant]
     Active Substance: CORTISONE\HYDROCORTISONE
  11. CAPECITABINE. [Suspect]
     Active Substance: CAPECITABINE
     Indication: BREAST CANCER
     Route: 048
     Dates: start: 20170911
  12. MORPHINE [Concomitant]
     Active Substance: MORPHINE
  13. LISINOPRIL. [Concomitant]
     Active Substance: LISINOPRIL
  14. GAS RELIEF [Concomitant]
     Active Substance: DIMETHICONE
  15. MULTIVITAMINS [Concomitant]
     Active Substance: VITAMINS
  16. FLUOXETINE [Concomitant]
     Active Substance: FLUOXETINE HYDROCHLORIDE
  17. CALCIUM 600 +D [Concomitant]
  18. VITAMIN D3 [Concomitant]
     Active Substance: CHOLECALCIFEROL
  19. ATORVASTATIN [Concomitant]
     Active Substance: ATORVASTATIN
  20. FISH OIL [Concomitant]
     Active Substance: FISH OIL
  21. OXYCODONE [Concomitant]
     Active Substance: OXYCODONE
  22. LEVOTHYROXINE. [Concomitant]
     Active Substance: LEVOTHYROXINE

REACTIONS (1)
  - Disease progression [None]
